FAERS Safety Report 9297603 (Version 1)
Quarter: 2013Q2

REPORT INFORMATION
  Report Type: Spontaneous
  Country: US (occurrence: US)
  Receive Date: 20130520
  Receipt Date: 20130520
  Transmission Date: 20140414
  Serious: Yes (Other)
  Sender: FDA-Public Use
  Company Number: PHEH2013US010823

PATIENT
  Sex: Male

DRUGS (9)
  1. TEKTURNA [Suspect]
  2. CARVEDIOL [Concomitant]
     Dosage: 2.5 MG, TID
  3. MINOXIDIL [Concomitant]
     Dosage: 2.5 MG, QD
  4. ALLOPURINOL [Concomitant]
     Dosage: 100 MG, QD
  5. PAROXETINE HCL [Concomitant]
     Dosage: 60 MG, QD
  6. ARMOUR THYROID [Concomitant]
     Dosage: 60 MG, QD
  7. RENVELA [Concomitant]
     Dosage: 800 MG, TID
  8. TIZANIDINE HYDROCHLORIDE [Concomitant]
     Dosage: 4 MG
  9. AMITIZA [Concomitant]
     Dosage: 24 MG, BID

REACTIONS (22)
  - Essential hypertension [Unknown]
  - Homocystinaemia [Unknown]
  - Hernia [Unknown]
  - Type 2 diabetes mellitus [Unknown]
  - Sleep apnoea syndrome [Unknown]
  - Depression [Unknown]
  - Hypothyroidism [Unknown]
  - Cardiac failure congestive [Unknown]
  - Nephrolithiasis [Unknown]
  - Umbilical hernia [Unknown]
  - Anxiety [Unknown]
  - Patella fracture [Unknown]
  - Renal failure [Unknown]
  - Gout [Unknown]
  - Malaise [Unknown]
  - Fatigue [Unknown]
  - Dyspnoea [Unknown]
  - Oedema [Unknown]
  - Vitamin D deficiency [Unknown]
  - Impaired gastric emptying [Unknown]
  - Constipation [Unknown]
  - Abdominal pain [Unknown]
